APPROVED DRUG PRODUCT: LABETALOL HYDROCHLORIDE
Active Ingredient: LABETALOL HYDROCHLORIDE
Strength: 5MG/ML
Dosage Form/Route: INJECTABLE;INJECTION
Application: A075524 | Product #001
Applicant: RISING PHARMA HOLDINGS INC
Approved: Nov 29, 1999 | RLD: No | RS: No | Type: DISCN